FAERS Safety Report 8835960 (Version 2)
Quarter: 2012Q4

REPORT INFORMATION
  Report Type: 
  Country: US (occurrence: US)
  Receive Date: 20121011
  Receipt Date: 20121017
  Transmission Date: 20130627
  Serious: No
  Sender: FDA-Public Use
  Company Number: US-PFIZER INC-2012247755

PATIENT
  Age: 50 Year
  Sex: Female
  Weight: 71 kg

DRUGS (6)
  1. PREMARIN [Suspect]
     Indication: HOT FLUSH
     Dosage: 1.25 mg, daily
     Dates: end: 20121002
  2. ACCUPRIL [Concomitant]
     Indication: HYPERTENSION
     Dosage: 20 mg, 2x/day
  3. LIPITOR [Concomitant]
     Indication: BLOOD CHOLESTEROL INCREASED
     Dosage: 20 mg, daily
  4. LOPRESSOR [Concomitant]
     Indication: CARDIAC DISORDER
     Dosage: 50 mg, 2x/day
  5. ASPIRIN ^BAYER^ [Concomitant]
     Indication: CARDIAC DISORDER
     Dosage: 325 mg, daily
  6. ONE-A-DAY [Concomitant]
     Indication: ROUTINE HEALTH MAINTENANCE
     Dosage: 1 DF, daily

REACTIONS (3)
  - Insomnia [Not Recovered/Not Resolved]
  - Hot flush [Not Recovered/Not Resolved]
  - Night sweats [Not Recovered/Not Resolved]
